FAERS Safety Report 9792844 (Version 1)
Quarter: 2014Q1

REPORT INFORMATION
  Report Type: Spontaneous
  Country: US (occurrence: US)
  Receive Date: 20140102
  Receipt Date: 20140102
  Transmission Date: 20141002
  Serious: No
  Sender: FDA-Public Use
  Company Number: US-SANOFI-AVENTIS-2013SA043934

PATIENT
  Sex: Female

DRUGS (2)
  1. AUBAGIO [Suspect]
     Indication: MULTIPLE SCLEROSIS
     Route: 048
  2. BETASERON [Concomitant]

REACTIONS (6)
  - Hyperhidrosis [Unknown]
  - Condition aggravated [Unknown]
  - Dizziness [Unknown]
  - Sleep disorder [Unknown]
  - Influenza like illness [Unknown]
  - Alopecia [Unknown]
